FAERS Safety Report 7887479-8 (Version None)
Quarter: 2011Q4

REPORT INFORMATION
  Report Type: 
  Country: None (occurrence: None)
  Receive Date: 20111102
  Receipt Date: 20110719
  Transmission Date: 20120403
  Serious: No
  Sender: FDA-Public Use
  Company Number: US-AMGEN-USASP2011032511

PATIENT
  Age: 69 Year
  Sex: Female
  Weight: 78.458 kg

DRUGS (14)
  1. METOPROLOL TARTRATE [Concomitant]
     Indication: HYPERTENSION
     Dosage: UNK
  2. TRICOR [Concomitant]
     Indication: BLOOD CHOLESTEROL INCREASED
     Dosage: UNK
  3. GLIPIZIDE [Concomitant]
     Indication: DIABETES MELLITUS
     Dosage: UNK
  4. ASPIRIN [Concomitant]
     Dosage: UNK
  5. INSULIN GLARGINE [Concomitant]
     Indication: DIABETES MELLITUS
     Dosage: UNK
  6. GLUCOPHAGE [Concomitant]
     Indication: DIABETES MELLITUS
     Dosage: UNK
  7. ZETIA [Concomitant]
     Indication: BLOOD CHOLESTEROL INCREASED
     Dosage: UNK
  8. PLAVIX [Concomitant]
     Indication: CEREBROVASCULAR ACCIDENT
     Dosage: UNK
  9. CITRUCEL [Concomitant]
     Dosage: UNK
  10. HYDROCHLOROTHIAZIDE [Concomitant]
     Indication: HYPERTENSION
     Dosage: 25 MG, UNK
  11. LOSARTAN POTASSIUM [Concomitant]
     Indication: HYPERTENSION
     Dosage: UNK
  12. ENBREL [Suspect]
     Indication: RHEUMATOID ARTHRITIS
     Dosage: 50 MG, WEEKLY
     Dates: start: 20040101
  13. DULCOLAX [Concomitant]
     Dosage: UNK
  14. FISH OIL [Concomitant]
     Dosage: UNK

REACTIONS (7)
  - MUSCULOSKELETAL PAIN [None]
  - CHEST PAIN [None]
  - DYSPNOEA [None]
  - DYSPEPSIA [None]
  - COUGH [None]
  - BACK PAIN [None]
  - NIGHT SWEATS [None]
